FAERS Safety Report 21274739 (Version 2)
Quarter: 2022Q4

REPORT INFORMATION
  Report Type: Spontaneous
  Country: BE (occurrence: BE)
  Receive Date: 20220831
  Receipt Date: 20221017
  Transmission Date: 20230113
  Serious: Yes (Death, Other)
  Sender: FDA-Public Use
  Company Number: BE-PFIZER INC-202201105802

PATIENT
  Sex: Female

DRUGS (1)
  1. LYRICA [Suspect]
     Active Substance: PREGABALIN
     Indication: Product used for unknown indication
     Dosage: UNK
     Route: 065

REACTIONS (5)
  - Neoplasm malignant [Fatal]
  - Syncope [Unknown]
  - Migraine [Unknown]
  - Balance disorder [Unknown]
  - Fall [Unknown]

NARRATIVE: CASE EVENT DATE: 20220101
